FAERS Safety Report 9000681 (Version 2)
Quarter: 2013Q1

REPORT INFORMATION
  Report Type: Spontaneous
  Country: FR (occurrence: None)
  Receive Date: 20121226
  Receipt Date: 20130131
  Transmission Date: 20140127
  Serious: Yes (Hospitalization)
  Sender: FDA-Public Use
  Company Number: 2012MPI00448

PATIENT
  Age: 55 Year
  Sex: Female

DRUGS (4)
  1. BRENTUXIMAB VEDOTIN (BRENTUXIMAB VEDOTIN) INJECTION [Suspect]
     Indication: HODGKIN^S DISEASE
     Dosage: 1.8 MG/KG, Q21D, INTRAVENOUS
     Route: 042
     Dates: start: 20120330, end: 20120330
  2. VALACICLOVIR (VALACICLOVIR HYDROCHLORIDE) [Concomitant]
  3. OMEPRAZOLE (OMEPRAZOLE) [Concomitant]
  4. CONTRACEPTIVE HD (ETHINYLESTRADIOL, NORGESTRAL) [Concomitant]

REACTIONS (18)
  - Dehydration [None]
  - Hypoxia [None]
  - Metabolic acidosis [None]
  - Diarrhoea [None]
  - Alanine aminotransferase increased [None]
  - Aspartate aminotransferase increased [None]
  - Blood alkaline phosphatase increased [None]
  - Gamma-glutamyltransferase increased [None]
  - Pain [None]
  - Abdominal pain [None]
  - Pain in extremity [None]
  - Back pain [None]
  - Body temperature increased [None]
  - Dry mouth [None]
  - Malaise [None]
  - Tachypnoea [None]
  - Hypocapnia [None]
  - Sinus tachycardia [None]
